FAERS Safety Report 7041811-6 (Version None)
Quarter: 2010Q4

REPORT INFORMATION
  Report Type: 
  Country: None (occurrence: None)
  Receive Date: 20101013
  Receipt Date: 20101007
  Transmission Date: 20110411
  Serious: Yes (Other)
  Sender: FDA-Public Use
  Company Number: PHHY2010JP64919

PATIENT
  Age: 10 Year
  Sex: Male

DRUGS (5)
  1. SIMULECT [Suspect]
     Indication: RENAL TRANSPLANT
     Dosage: 10 MG
     Route: 042
  2. METHYLPREDNISOLONE [Concomitant]
     Dosage: UNK
     Route: 048
  3. TACROLIMUS [Concomitant]
     Dosage: UNK
     Route: 048
  4. MYCOPHENOLATE MOFETIL [Concomitant]
     Dosage: UNK
     Route: 048
  5. RITUXIMAB [Concomitant]
     Dosage: 100 MG

REACTIONS (7)
  - BRAIN OEDEMA [None]
  - CONVULSION [None]
  - HYPONATRAEMIA [None]
  - INAPPROPRIATE ANTIDIURETIC HORMONE SECRETION [None]
  - MECHANICAL VENTILATION [None]
  - RENAL TUBULAR DISORDER [None]
  - SEDATION [None]
